FAERS Safety Report 8265494-2 (Version None)
Quarter: 2012Q2

REPORT INFORMATION
  Report Type: 
  Country: None (occurrence: None)
  Receive Date: 20120406
  Receipt Date: 20120330
  Transmission Date: 20120825
  Serious: Yes (Hospitalization)
  Sender: FDA-Public Use
  Company Number: IT-SANOFI-AVENTIS-2012SA022166

PATIENT
  Age: 74 Year
  Sex: Male

DRUGS (2)
  1. PREDNISONE TAB [Concomitant]
     Route: 048
     Dates: start: 20120315, end: 20120322
  2. CABAZITAXEL [Suspect]
     Route: 042
     Dates: start: 20120315, end: 20120315

REACTIONS (2)
  - PANCYTOPENIA [None]
  - RECTAL HAEMORRHAGE [None]
